FAERS Safety Report 19164818 (Version 1)
Quarter: 2021Q2

REPORT INFORMATION
  Report Type: Spontaneous
  Country: US (occurrence: US)
  Receive Date: 20210421
  Receipt Date: 20210421
  Transmission Date: 20210717
  Serious: No
  Sender: FDA-Public Use
  Company Number: US-JNJFOC-20210420991

PATIENT

DRUGS (1)
  1. SPRAVATO [Suspect]
     Active Substance: ESKETAMINE
     Indication: DEPRESSION

REACTIONS (6)
  - Tremor [Unknown]
  - Feeling abnormal [Unknown]
  - Dizziness [Unknown]
  - Paraesthesia [Unknown]
  - Anxiety [Unknown]
  - Euphoric mood [Unknown]
